FAERS Safety Report 5168590-1 (Version None)
Quarter: 2006Q4

REPORT INFORMATION
  Report Type: 
  Country: None (occurrence: None)
  Receive Date: 20061209
  Receipt Date: 20061129
  Transmission Date: 20070319
  Serious: Yes (Hospitalization)
  Sender: FDA-Public Use
  Company Number: IL-MERCK-0612ISR00003

PATIENT
  Age: 68 Year
  Sex: Male

DRUGS (4)
  1. ZOCOR [Suspect]
     Route: 048
  2. PREDNISONE TAB [Concomitant]
     Route: 065
  3. CYCLOSPORINE [Concomitant]
     Route: 065
  4. COLCHICINE [Concomitant]
     Indication: GOUT
     Route: 048

REACTIONS (2)
  - PNEUMONIA [None]
  - RHABDOMYOLYSIS [None]
